FAERS Safety Report 25623755 (Version 6)
Quarter: 2025Q4

REPORT INFORMATION
  Report Type: Report from Study
  Country: CA (occurrence: CA)
  Receive Date: 20250730
  Receipt Date: 20251218
  Transmission Date: 20260117
  Serious: Yes (Other)
  Sender: PFIZER
  Company Number: CA-PFIZER INC-202500152497

PATIENT
  Age: 29 Year
  Sex: Male
  Weight: 102 kg

DRUGS (7)
  1. IXIFI [Suspect]
     Active Substance: INFLIXIMAB-QBTX
     Indication: Crohn^s disease
     Dosage: 1000 MG, EVERY 4 WEEKS
     Route: 042
     Dates: start: 20250628
  2. IXIFI [Suspect]
     Active Substance: INFLIXIMAB-QBTX
     Dosage: 1000 MG, EVERY 4 WEEKS
     Route: 042
     Dates: start: 20250726
  3. IXIFI [Suspect]
     Active Substance: INFLIXIMAB-QBTX
     Dosage: 1000 MG, AFTER 4 WEEKS
     Route: 042
     Dates: start: 20250823
  4. IXIFI [Suspect]
     Active Substance: INFLIXIMAB-QBTX
     Dosage: 1000 MG, EVERY 4 WEEKS
     Route: 042
     Dates: start: 20250920
  5. IXIFI [Suspect]
     Active Substance: INFLIXIMAB-QBTX
     Dosage: 1000 MG, AFTER 4 WEEKS
     Route: 042
     Dates: start: 20251018
  6. IXIFI [Suspect]
     Active Substance: INFLIXIMAB-QBTX
     Dosage: 1000 MG, EVERY 4 WEEKS
     Route: 042
     Dates: start: 20251114
  7. IXIFI [Suspect]
     Active Substance: INFLIXIMAB-QBTX
     Dosage: 1000 MG, 4 WEEKS (1000 MG, EVERY 4 WEEKS)
     Route: 042
     Dates: start: 20251212

REACTIONS (3)
  - Uveitis [Recovered/Resolved]
  - Arthralgia [Not Recovered/Not Resolved]
  - Condition aggravated [Not Recovered/Not Resolved]

NARRATIVE: CASE EVENT DATE: 20250628
